FAERS Safety Report 15649555 (Version 2)
Quarter: 2018Q4

REPORT INFORMATION
  Report Type: Spontaneous
  Country: IT (occurrence: IT)
  Receive Date: 20181122
  Receipt Date: 20181220
  Transmission Date: 20190205
  Serious: Yes (Death, Hospitalization, Other)
  Sender: FDA-Public Use
  Company Number: IT-ABBVIE-18K-083-2566369-00

PATIENT
  Age: 48 Year
  Sex: Male
  Weight: 72 kg

DRUGS (6)
  1. CASPOFUNGIN [Concomitant]
     Active Substance: CASPOFUNGIN
     Indication: ANAL ABSCESS
     Route: 042
     Dates: start: 20181005, end: 20181112
  2. CEFTAZIDIME. [Concomitant]
     Active Substance: CEFTAZIDIME
     Indication: ANAL ABSCESS
     Dosage: 2 GR
     Route: 042
     Dates: start: 20181021, end: 20181024
  3. MEROPENEM. [Concomitant]
     Active Substance: MEROPENEM
     Indication: ANAL ABSCESS
     Dosage: 1 GR
     Route: 042
     Dates: start: 20181024, end: 20181213
  4. VENETOCLAX. [Suspect]
     Active Substance: VENETOCLAX
     Indication: ACUTE MYELOID LEUKAEMIA
     Route: 048
     Dates: start: 20180919, end: 20181102
  5. GENTAMICINE [Concomitant]
     Active Substance: GENTAMICIN
     Indication: ANAL ABSCESS
     Dosage: 30 GR; LOCAL APPLICATION
     Dates: start: 20181003, end: 20181030
  6. LINEZOLID. [Concomitant]
     Active Substance: LINEZOLID
     Indication: ANAL ABSCESS
     Dosage: 600 MG
     Route: 042
     Dates: start: 20181003, end: 20181016

REACTIONS (4)
  - Anal abscess [Not Recovered/Not Resolved]
  - Off label use [Unknown]
  - Acute myeloid leukaemia [Fatal]
  - Allogenic bone marrow transplantation therapy [Unknown]

NARRATIVE: CASE EVENT DATE: 2018
